APPROVED DRUG PRODUCT: VENLAFAXINE HYDROCHLORIDE
Active Ingredient: VENLAFAXINE HYDROCHLORIDE
Strength: EQ 75MG BASE
Dosage Form/Route: TABLET;ORAL
Application: A079098 | Product #004
Applicant: AMNEAL PHARMACEUTICALS
Approved: May 11, 2010 | RLD: No | RS: No | Type: DISCN